FAERS Safety Report 15615937 (Version 1)
Quarter: 2018Q4

REPORT INFORMATION
  Report Type: Spontaneous
  Country: IT (occurrence: IT)
  Receive Date: 20181114
  Receipt Date: 20181114
  Transmission Date: 20190205
  Serious: Yes (Hospitalization)
  Sender: FDA-Public Use
  Company Number: IT-ACCORD-092088

PATIENT
  Age: 89 Year
  Sex: Female
  Weight: 47 kg

DRUGS (1)
  1. METHOTREXATE. [Suspect]
     Active Substance: METHOTREXATE
     Indication: PSORIATIC ARTHROPATHY
     Route: 048
     Dates: end: 20180726

REACTIONS (2)
  - Drug abuse [Unknown]
  - Pancytopenia [Recovering/Resolving]

NARRATIVE: CASE EVENT DATE: 20180726
